FAERS Safety Report 4564755-8 (Version None)
Quarter: 2005Q1

REPORT INFORMATION
  Report Type: 
  Country: None (occurrence: None)
  Receive Date: 20050128
  Receipt Date: 20050118
  Transmission Date: 20050727
  Serious: Yes (Hospitalization)
  Sender: FDA-Public Use
  Company Number: US-ABBOTT-05P-163-0287135-00

PATIENT
  Sex: Female
  Weight: 38.136 kg

DRUGS (1)
  1. HUMIRA [Suspect]
     Indication: RHEUMATOID ARTHRITIS
     Route: 058
     Dates: start: 20040101

REACTIONS (6)
  - BLOOD PRESSURE DECREASED [None]
  - CHEST X-RAY ABNORMAL [None]
  - DECREASED APPETITE [None]
  - FULL BLOOD COUNT DECREASED [None]
  - HEADACHE [None]
  - VOMITING [None]
